FAERS Safety Report 11304818 (Version 2)
Quarter: 2015Q4

REPORT INFORMATION
  Report Type: Spontaneous
  Country: BR (occurrence: BR)
  Receive Date: 20150723
  Receipt Date: 20151005
  Transmission Date: 20160304
  Serious: Yes (Hospitalization)
  Sender: FDA-Public Use
  Company Number: BR-PFIZER INC-2015241353

PATIENT
  Age: 53 Year
  Sex: Male
  Weight: 80 kg

DRUGS (4)
  1. FRONTAL [Suspect]
     Active Substance: ALPRAZOLAM
     Indication: DEPRESSION
     Dosage: 4 MG/DAY
  2. CEBRILIN [Concomitant]
     Indication: DEPRESSION
     Dosage: 1 TABLET PER DAY
     Dates: start: 2005
  3. FRONTAL [Suspect]
     Active Substance: ALPRAZOLAM
     Indication: ANXIETY
     Dosage: 1 MG (1 TABLET), 3X/DAY
     Route: 048
     Dates: start: 2005, end: 2010
  4. FRONTAL [Suspect]
     Active Substance: ALPRAZOLAM
     Dosage: 1 MG, 2X/DAY
     Route: 048

REACTIONS (2)
  - Fall [Unknown]
  - Multiple injuries [Not Recovered/Not Resolved]

NARRATIVE: CASE EVENT DATE: 2010
